FAERS Safety Report 23733397 (Version 1)
Quarter: 2024Q2

REPORT INFORMATION
  Report Type: Spontaneous
  Country: PT (occurrence: PT)
  Receive Date: 20240411
  Receipt Date: 20240411
  Transmission Date: 20240716
  Serious: Yes (Hospitalization, Other)
  Sender: FDA-Public Use
  Company Number: PT-FreseniusKabi-FK202405665

PATIENT
  Age: 4 Year
  Sex: Male

DRUGS (7)
  1. CARBOPLATIN [Suspect]
     Active Substance: CARBOPLATIN
     Indication: Retinoblastoma
  2. THIOTEPA [Suspect]
     Active Substance: THIOTEPA
     Indication: Retinoblastoma
  3. ETOPOSIDE [Suspect]
     Active Substance: ETOPOSIDE
     Indication: Retinoblastoma
     Dosage: INDUCTION PHASE CONSISTED OF FOUR CYCLES OF VINCRISTINE, CISPLATIN, CYCLOPHOSPHAMIDE AND ETOPOSIDE
  4. VINCRISTINE [Suspect]
     Active Substance: VINCRISTINE
     Indication: Retinoblastoma
     Dosage: INDUCTION PHASE CONSISTED OF FOUR CYCLES OF VINCRISTINE, CISPLATIN, CYCLOPHOSPHAMIDE AND ETOPOSIDE
  5. CISPLATIN [Suspect]
     Active Substance: CISPLATIN
     Indication: Retinoblastoma
     Dosage: INDUCTION PHASE CONSISTED OF FOUR CYCLES OF VINCRISTINE, CISPLATIN, CYCLOPHOSPHAMIDE AND ETOPOSIDE
  6. CYCLOPHOSPHAMIDE [Suspect]
     Active Substance: CYCLOPHOSPHAMIDE
     Indication: Retinoblastoma
     Dosage: INDUCTION PHASE CONSISTED OF FOUR CYCLES OF VINCRISTINE, CISPLATIN, CYCLOPHOSPHAMIDE AND ETOPOSIDE
  7. RADIATION THERAPY [Suspect]
     Active Substance: RADIATION THERAPY
     Indication: Retinoblastoma
     Dosage: (45 GY IN 25 FRACTIONS)

REACTIONS (9)
  - Stomatitis [Unknown]
  - Oesophagitis [Unknown]
  - Bone marrow failure [Recovered/Resolved]
  - Cytomegalovirus chorioretinitis [Recovering/Resolving]
  - Herpes simplex [Recovering/Resolving]
  - Retinitis [Recovering/Resolving]
  - Chorioretinal scar [Unknown]
  - Retinal haemorrhage [Unknown]
  - Immunosuppression [Unknown]
